FAERS Safety Report 7867750-6 (Version None)
Quarter: 2011Q4

REPORT INFORMATION
  Report Type: 
  Country: None (occurrence: None)
  Receive Date: 20111028
  Receipt Date: 20111018
  Transmission Date: 20120403
  Serious: Yes (Hospitalization)
  Sender: FDA-Public Use
  Company Number: JP-ASTRAZENECA-2011SE64177

PATIENT
  Age: 27 Year
  Sex: Female

DRUGS (6)
  1. SEPAZON [Concomitant]
  2. TETRAMIDE [Concomitant]
  3. SEROQUEL [Suspect]
     Indication: SCHIZOPHRENIA
     Route: 048
  4. EURODIN [Concomitant]
  5. RHYTHMY [Concomitant]
  6. SERTRALINE HYDROCHLORIDE [Concomitant]

REACTIONS (2)
  - SOMNOLENCE [None]
  - MULTIPLE DRUG OVERDOSE INTENTIONAL [None]
